FAERS Safety Report 14171612 (Version 2)
Quarter: 2017Q4

REPORT INFORMATION
  Report Type: Spontaneous
  Country: BR (occurrence: BR)
  Receive Date: 20171108
  Receipt Date: 20171128
  Transmission Date: 20180321
  Serious: Yes (Hospitalization, Other)
  Sender: FDA-Public Use
  Company Number: BR-ALEXION PHARMACEUTICALS INC.-A201712270

PATIENT
  Sex: Male
  Weight: 82 kg

DRUGS (12)
  1. DIPYRONE [Concomitant]
     Active Substance: DIPYRONE
     Indication: GALLBLADDER PAIN
  2. SOLIRIS [Suspect]
     Active Substance: ECULIZUMAB
     Indication: PAROXYSMAL NOCTURNAL HAEMOGLOBINURIA
     Dosage: 600 MG, UNK
     Route: 042
     Dates: start: 20151127, end: 20151218
  3. SOLIRIS [Suspect]
     Active Substance: ECULIZUMAB
     Dosage: UNK
     Route: 065
     Dates: end: 201708
  4. XARELTO [Concomitant]
     Active Substance: RIVAROXABAN
     Indication: VENOUS THROMBOSIS
     Dosage: 20 MG, QD
     Route: 048
  5. PREDNISONE. [Concomitant]
     Active Substance: PREDNISONE
     Dosage: 20 MG, QD
     Route: 048
  6. ESCOPOLAMINA [Concomitant]
     Indication: RENAL PAIN
     Dosage: UNK
     Route: 065
     Dates: end: 20171016
  7. COZAAR [Concomitant]
     Active Substance: LOSARTAN POTASSIUM
     Indication: HYPERTENSION
     Dosage: 50 MG, QD
     Route: 048
  8. DIPYRONE [Concomitant]
     Active Substance: DIPYRONE
     Indication: RENAL PAIN
     Dosage: UNK
     Route: 065
     Dates: end: 20171016
  9. PREDNISONE. [Concomitant]
     Active Substance: PREDNISONE
     Indication: HAEMOGLOBIN
     Dosage: 40 MG, QD
     Route: 048
  10. ESCOPOLAMINA [Concomitant]
     Indication: GALLBLADDER PAIN
  11. SOLIRIS [Suspect]
     Active Substance: ECULIZUMAB
     Dosage: 900 MG, Q2W
     Route: 042
     Dates: start: 20151223, end: 20170901
  12. OMEPRAZOLE. [Concomitant]
     Active Substance: OMEPRAZOLE
     Indication: DYSPEPSIA
     Dosage: UNK
     Route: 048

REACTIONS (12)
  - Renal failure [Not Recovered/Not Resolved]
  - Blood creatinine increased [Unknown]
  - Memory impairment [Unknown]
  - Alanine aminotransferase increased [Unknown]
  - Dizziness [Unknown]
  - Respiratory tract infection [Unknown]
  - Very low density lipoprotein increased [Unknown]
  - Venous thrombosis [Unknown]
  - Haemoglobin decreased [Unknown]
  - Inappropriate schedule of drug administration [Unknown]
  - Aspartate aminotransferase increased [Unknown]
  - Asthenia [Unknown]

NARRATIVE: CASE EVENT DATE: 2016
